FAERS Safety Report 5300287-7 (Version None)
Quarter: 2007Q2

REPORT INFORMATION
  Report Type: 
  Country: None (occurrence: None)
  Receive Date: 20070410
  Receipt Date: 20070328
  Transmission Date: 20071010
  Serious: Yes (Death, Other)
  Sender: FDA-Public Use
  Company Number: GXKR2007IE02994

PATIENT
  Age: 38 Year
  Sex: Male

DRUGS (2)
  1. PAROXETINE HCL [Suspect]
     Dosage: 40 MG, QD, ORAL
     Route: 048
  2. CLOZARIL [Suspect]
     Dosage: 200 MG, QD, ORAL
     Route: 048
     Dates: start: 20031021

REACTIONS (3)
  - CARDIAC DISORDER [None]
  - FATIGUE [None]
  - WEIGHT INCREASED [None]
